FAERS Safety Report 5994288-3 (Version None)
Quarter: 2008Q4

REPORT INFORMATION
  Report Type: 
  Country: None (occurrence: None)
  Receive Date: 20081212
  Receipt Date: 20080905
  Transmission Date: 20090506
  Serious: No
  Sender: FDA-Public Use
  Company Number: US-ABBOTT-08P-163-0474791-00

PATIENT
  Sex: Female
  Weight: 65.83 kg

DRUGS (6)
  1. HUMIRA [Suspect]
     Indication: RHEUMATOID ARTHRITIS
     Route: 058
     Dates: start: 20080101, end: 20080201
  2. HUMIRA [Suspect]
     Route: 058
     Dates: start: 20080201
  3. FOLIC ACID [Concomitant]
     Indication: MINERAL SUPPLEMENTATION
     Dosage: 2-4 MG PER DAY
     Route: 048
     Dates: start: 20080101
  4. METHOTREXATE [Concomitant]
     Indication: RHEUMATOID ARTHRITIS
     Dosage: 17.5 MG WEEKLY, 7 TABS OF 2.5 MG WEEKLY
     Route: 048
     Dates: start: 20080101
  5. DULOXETINE HYDROCHLORIDE [Concomitant]
     Indication: DEPRESSION
     Route: 048
     Dates: start: 20080601
  6. MORPHINE [Concomitant]
     Indication: PAIN
     Dosage: 15 MG, TABLET, ONE IN AM AND TWO IN PMTWO IN PM
     Route: 048
     Dates: start: 20060101

REACTIONS (4)
  - ARTHRALGIA [None]
  - DRUG INEFFECTIVE [None]
  - FATIGUE [None]
  - PROCEDURAL COMPLICATION [None]
